FAERS Safety Report 23231680 (Version 1)
Quarter: 2023Q4

REPORT INFORMATION
  Report Type: Spontaneous
  Country: US (occurrence: None)
  Receive Date: 20231125
  Receipt Date: 20231125
  Transmission Date: 20240109
  Serious: No
  Sender: FDA-Public Use
  Company Number: None

PATIENT
  Age: 64 Year
  Sex: Female
  Weight: 63 kg

DRUGS (5)
  1. WIXELA INHUB [Suspect]
     Active Substance: FLUTICASONE PROPIONATE\SALMETEROL XINAFOATE
     Indication: COVID-19
     Dosage: OTHER QUANTITY : 1 PUFF(S);?FREQUENCY : TWICE A DAY;?
     Route: 055
  2. PROPRANOLOL [Concomitant]
     Active Substance: PROPRANOLOL HYDROCHLORIDE
  3. PRASTERONE [Concomitant]
     Active Substance: PRASTERONE
  4. Vid D [Concomitant]
  5. PYRIDOXINE HYDROCHLORIDE [Concomitant]
     Active Substance: PYRIDOXINE HYDROCHLORIDE

REACTIONS (3)
  - Visual impairment [None]
  - Lacrimation increased [None]
  - Vision blurred [None]

NARRATIVE: CASE EVENT DATE: 20231102
